FAERS Safety Report 8290269-8 (Version None)
Quarter: 2012Q2

REPORT INFORMATION
  Report Type: 
  Country: None (occurrence: None)
  Receive Date: 20120417
  Receipt Date: 20120402
  Transmission Date: 20120825
  Serious: Yes (Hospitalization, Other)
  Sender: FDA-Public Use
  Company Number: US-JUTA GMBH-2012-06028

PATIENT
  Age: 30 Year
  Sex: Male

DRUGS (3)
  1. METOCLOPRAMIDE INJECTION [Suspect]
     Indication: VOMITING
  2. METOCLOPRAMIDE INJECTION [Suspect]
     Indication: NAUSEA
     Dosage: 10 MG, BID
     Route: 048
  3. SERTRALINE HYDROCHLORIDE [Suspect]
     Indication: ANXIETY
     Dosage: 50 MG, DAILY
     Route: 048

REACTIONS (7)
  - ANXIETY [None]
  - INSOMNIA [None]
  - AGITATION [None]
  - HALLUCINATION [None]
  - HOMICIDAL IDEATION [None]
  - DELUSION [None]
  - SUICIDAL IDEATION [None]
